FAERS Safety Report 9552647 (Version 1)
Quarter: 2013Q3

REPORT INFORMATION
  Report Type: Spontaneous
  Country: US (occurrence: None)
  Receive Date: 20130924
  Receipt Date: 20130924
  Transmission Date: 20140515
  Serious: Yes (Hospitalization)
  Sender: FDA-Public Use
  Company Number: None

PATIENT
  Age: 71 Year
  Sex: Male
  Weight: 83.5 kg

DRUGS (12)
  1. BYDUREON [Suspect]
     Route: 058
     Dates: start: 201209, end: 201309
  2. TRIZANTERONE [Concomitant]
  3. HCTZ [Concomitant]
  4. METFORMIN [Concomitant]
  5. FUROSEMIDE [Concomitant]
  6. LISINOPRIL [Concomitant]
  7. TRICON [Concomitant]
  8. ASPIRIN [Concomitant]
  9. VIT. D. [Concomitant]
  10. AMLODIPINE [Concomitant]
  11. MERCURAPAIN [Concomitant]
  12. ORBET [Concomitant]

REACTIONS (4)
  - Abdominal pain [None]
  - Nausea [None]
  - Vomiting [None]
  - Pancreatitis acute [None]
